FAERS Safety Report 9537515 (Version 1)
Quarter: 2013Q3

REPORT INFORMATION
  Report Type: Report from Study
  Country: US (occurrence: US)
  Receive Date: 20130919
  Receipt Date: 20130919
  Transmission Date: 20140515
  Serious: Yes (Other)
  Sender: FDA-Public Use
  Company Number: PHEH2013US019544

PATIENT
  Sex: Female

DRUGS (1)
  1. GLEEVEC [Suspect]
     Dosage: 300 MG, DAILY
     Route: 048

REACTIONS (2)
  - Autonomic nervous system imbalance [Unknown]
  - Anaphylactic shock [Recovering/Resolving]
